FAERS Safety Report 4341475-6 (Version None)
Quarter: 2004Q2

REPORT INFORMATION
  Report Type: 
  Country: None (occurrence: None)
  Receive Date: 20040415
  Receipt Date: 20040401
  Transmission Date: 20050107
  Serious: Yes (Hospitalization)
  Sender: FDA-Public Use
  Company Number: 231615

PATIENT
  Age: 1 Day
  Sex: Male
  Weight: 3.3 kg

DRUGS (4)
  1. NOVORAPID PENFILL 3ML (NOVORAPID PENFILL 3 ML) [Suspect]
     Indication: DIABETES MELLITUS
     Dosage: 20+8+22, INTRAUTERINE
     Route: 015
     Dates: start: 20021112, end: 20030510
  2. PROTAPHANE PENFILL HM (GE) 3ML (INSULIN HUMAN) SUSPENSION FOR INJECTIO [Concomitant]
  3. ACETAMINOPHEN [Concomitant]
  4. GRAVITAMIN [Concomitant]

REACTIONS (2)
  - HYPOGLYCAEMIA NEONATAL [None]
  - MATERNAL DRUGS AFFECTING FOETUS [None]
